FAERS Safety Report 4946244-1 (Version None)
Quarter: 2006Q1

REPORT INFORMATION
  Report Type: 
  Country: None (occurrence: None)
  Receive Date: 20060317
  Receipt Date: 20060307
  Transmission Date: 20060701
  Serious: Yes (Life-Threatening, Hospitalization)
  Sender: FDA-Public Use
  Company Number: US-SANOFI-SYNTHELABO-A03200601205

PATIENT
  Age: 71 Year
  Sex: Female

DRUGS (8)
  1. AMBIEN [Suspect]
     Indication: INSOMNIA
     Route: 048
     Dates: start: 20060126, end: 20060126
  2. AMBIEN [Suspect]
     Route: 048
     Dates: start: 20050901, end: 20060126
  3. STUDY MEDICATION NOS [Suspect]
     Indication: DRUG USE FOR UNKNOWN INDICATION
     Dosage: UNK
     Route: 065
     Dates: start: 20050921, end: 20060126
  4. PREMARIN [Concomitant]
     Dosage: UNK
     Route: 048
  5. BUMEX [Concomitant]
     Dosage: UNK
     Route: 048
  6. POTASSIUM [Concomitant]
     Dosage: UNK
     Route: 048
  7. FAMCICLOVIR [Concomitant]
     Dosage: UNK
     Route: 048
  8. PROTONIX [Concomitant]
     Dosage: UNK
     Route: 048

REACTIONS (6)
  - CARBON DIOXIDE INCREASED [None]
  - HYPOVENTILATION [None]
  - INTENTIONAL OVERDOSE [None]
  - TARDIVE DYSKINESIA [None]
  - UNRESPONSIVE TO VERBAL STIMULI [None]
  - URINARY TRACT INFECTION [None]
